FAERS Safety Report 9538492 (Version 1)
Quarter: 2013Q2

REPORT INFORMATION
  Report Type: Spontaneous
  Country: US (occurrence: None)
  Receive Date: 20130510
  Receipt Date: 20130510
  Transmission Date: 20140414
  Serious: No
  Sender: FDA-Public Use
  Company Number: US-011057

PATIENT
  Age: 43 Year
  Sex: Male
  Weight: 72.58 kg

DRUGS (13)
  1. PICO-SALAX [Suspect]
     Indication: PRODUCT USED FOR UNKNOWN INDICATION
     Dosage: 1 PACKET MIXED WITH 5 OUNCES OF WATER X 2 ORAL
     Route: 048
     Dates: start: 20130303, end: 20130304
  2. TRAZODONE [Concomitant]
  3. BYSTOLIC [Concomitant]
  4. CRESTOR [Concomitant]
  5. ADDERALL [Concomitant]
  6. OXYCODONE [Concomitant]
  7. ROXICODONE [Concomitant]
  8. DICYCLOMINE [Concomitant]
  9. PROGESTERONE [Concomitant]
  10. LEVOQUIN [Concomitant]
  11. UROGESIC [Concomitant]
  12. NATURE MADE B12 VITAMIN [Concomitant]
  13. EUFLEXXA [Concomitant]

REACTIONS (6)
  - Abdominal discomfort [None]
  - Eructation [None]
  - Nausea [None]
  - Dyspepsia [None]
  - Abdominal distension [None]
  - Vomiting [None]
